FAERS Safety Report 6164245-5 (Version None)
Quarter: 2009Q2

REPORT INFORMATION
  Report Type: 
  Country: None (occurrence: None)
  Receive Date: 20090422
  Receipt Date: 20090415
  Transmission Date: 20091009
  Serious: Yes (Other)
  Sender: FDA-Public Use
  Company Number: BR-ASTRAZENECA-2009UW09553

PATIENT
  Age: 48 Year
  Sex: Male
  Weight: 76 kg

DRUGS (3)
  1. SYMBICORT [Suspect]
     Indication: BRONCHITIS
     Route: 055
     Dates: start: 20090414
  2. OMEPRAZOLE [Suspect]
     Indication: GASTRITIS
     Route: 048
     Dates: start: 20040101
  3. ARADOIS [Concomitant]
     Indication: HYPERTENSION

REACTIONS (1)
  - GASTRITIS [None]
